FAERS Safety Report 6899448-5 (Version None)
Quarter: 2010Q3

REPORT INFORMATION
  Report Type: 
  Country: None (occurrence: None)
  Receive Date: 20100803
  Receipt Date: 20100209
  Transmission Date: 20110219
  Serious: No
  Sender: FDA-Public Use
  Company Number: US-PFIZER INC-2006070158

PATIENT
  Sex: Male
  Weight: 74.8 kg

DRUGS (3)
  1. LYRICA [Suspect]
     Indication: HERPES ZOSTER
     Dosage: 50 MG, 3X/DAY
     Dates: start: 20060101
  2. WARFARIN SODIUM [Concomitant]
     Dosage: 2 MG, 1X/DAY
  3. CRESTOR [Concomitant]
     Dosage: 10 MG, UNK

REACTIONS (5)
  - DRUG INEFFECTIVE [None]
  - HERPES ZOSTER [None]
  - INSOMNIA [None]
  - SOMNOLENCE [None]
  - VISION BLURRED [None]
